FAERS Safety Report 23078960 (Version 5)
Quarter: 2024Q1

REPORT INFORMATION
  Report Type: Spontaneous
  Country: US (occurrence: US)
  Receive Date: 20231018
  Receipt Date: 20240313
  Transmission Date: 20240410
  Serious: No
  Sender: FDA-Public Use
  Company Number: US-BRISTOL-MYERS SQUIBB COMPANY-2023-147860

PATIENT
  Age: 81 Year
  Sex: Female

DRUGS (2)
  1. CAMZYOS [Suspect]
     Active Substance: MAVACAMTEN
     Indication: Hypertrophic cardiomyopathy
     Dosage: OTHER STRENGTH: 2.5 MG
     Route: 048
  2. CAMZYOS [Suspect]
     Active Substance: MAVACAMTEN
     Dosage: OTHER STRENGTH: 2.5 MG
     Route: 048

REACTIONS (5)
  - Urinary tract infection [Unknown]
  - Wrong dosage form [Unknown]
  - Sinusitis [Unknown]
  - Peripheral swelling [Unknown]
  - Weight increased [Unknown]

NARRATIVE: CASE EVENT DATE: 20231015
